FAERS Safety Report 7003227-8 (Version None)
Quarter: 2010Q3

REPORT INFORMATION
  Report Type: 
  Country: None (occurrence: None)
  Receive Date: 20100916
  Receipt Date: 20100908
  Transmission Date: 20110219
  Serious: Yes (Hospitalization)
  Sender: FDA-Public Use
  Company Number: US-003544

PATIENT
  Sex: Male
  Weight: 67.1324 kg

DRUGS (12)
  1. DEGARELIX (240 MG, 80 MG, 80 MG) [Suspect]
     Indication: PROSTATE CANCER
     Dosage: (240 MG 1X SUBCUTANEOUS), (80 MG 1X/MONTH SUBCUTANEOUS),  (80 MG 1X SUBCUTANEOUS)
     Route: 058
     Dates: start: 20100504, end: 20100504
  2. DEGARELIX (240 MG, 80 MG, 80 MG) [Suspect]
     Indication: PROSTATE CANCER
     Dosage: (240 MG 1X SUBCUTANEOUS), (80 MG 1X/MONTH SUBCUTANEOUS),  (80 MG 1X SUBCUTANEOUS)
     Route: 058
     Dates: start: 20100611
  3. DEGARELIX (240 MG, 80 MG, 80 MG) [Suspect]
     Indication: PROSTATE CANCER
     Dosage: (240 MG 1X SUBCUTANEOUS), (80 MG 1X/MONTH SUBCUTANEOUS),  (80 MG 1X SUBCUTANEOUS)
     Route: 058
     Dates: start: 20100712
  4. CASODEX [Concomitant]
  5. FLOMAX /01280302/ [Concomitant]
  6. MULTI-VITAMINS [Concomitant]
  7. CALCIUM W/MAGNESIUM/VITAMIN D [Concomitant]
  8. COENZYME Q10 [Concomitant]
  9. CRANBERRY /01512301/ [Concomitant]
  10. VITAMIN D3 [Concomitant]
  11. PROBIOTICA [Concomitant]
  12. NIACIN [Concomitant]

REACTIONS (12)
  - ASTHENIA [None]
  - BACK PAIN [None]
  - CARDIOMEGALY [None]
  - COLD SWEAT [None]
  - COUGH [None]
  - HYDRONEPHROSIS [None]
  - HYPOTENSION [None]
  - NAUSEA [None]
  - PERICARDIAL EFFUSION [None]
  - PYREXIA [None]
  - SELF-MEDICATION [None]
  - TACHYCARDIA [None]
